FAERS Safety Report 11204240 (Version 1)
Quarter: 2015Q2

REPORT INFORMATION
  Report Type: Spontaneous
  Country: US (occurrence: US)
  Receive Date: 20150620
  Receipt Date: 20150620
  Transmission Date: 20150821
  Serious: No
  Sender: FDA-Public Use
  Company Number: US-009507513-1506USA006628

PATIENT
  Age: 21 Year
  Sex: Female

DRUGS (5)
  1. EMTRICITABINE (+) TENOFOVIR DISOPROXIL FUMARATE [Suspect]
     Active Substance: EMTRICITABINE\TENOFOVIR DISOPROXIL
     Dosage: COURSE NUMBER 1, TOTAL DAILY DOSE 1 (UNITS NOT PROVIDED), STARTED IN 35TH WEEK OF GESTATION
     Route: 048
  2. DARUNAVIR [Suspect]
     Active Substance: DARUNAVIR
     Dosage: COURSE NUMBER 1, TOTAL DAILY DOSE 2 (UNITS NOT PROVIDED), STARTED IN 35TH WEEK OF GESTATION
     Route: 048
  3. RITONAVIR. [Suspect]
     Active Substance: RITONAVIR
     Dosage: COURSE NUMBER 1, TOTAL DAILY DOSE 200 (UNITS NOT PROVIDED), STARTED IN 35TH WEEK OF GESTATION
     Route: 048
  4. EMTRICITABINE (+) RILPIVIRINE HYDROCHLORIDE (+) TENOFOVIR DISOPROXIL F [Suspect]
     Active Substance: EMTRICITABINE\RILPIVIRINE HYDROCHLORIDE\TENOFOVIR DISOPROXIL FUMARATE
     Dosage: COURSE NUMBER 1,TOTAL DAILY DOSE 1(UNITS NOT PROVIDED),STARTED IN 17TH GESTATIONAL WEEK,ENDED IN 35
     Route: 048
  5. RALTEGRAVIR POTASSIUM [Suspect]
     Active Substance: RALTEGRAVIR POTASSIUM
     Dosage: COURSE NUMBER 1, TOTAL DAILY DOSE 2 (UNITS NOT PROVIDED), STARTED IN 35TH WEEK OF GESTATION
     Route: 048

REACTIONS (2)
  - No adverse event [Unknown]
  - Exposure during pregnancy [Recovered/Resolved]
